FAERS Safety Report 19093545 (Version 1)
Quarter: 2021Q2

REPORT INFORMATION
  Report Type: Spontaneous
  Country: US (occurrence: US)
  Receive Date: 20210405
  Receipt Date: 20210405
  Transmission Date: 20210717
  Serious: Yes (Other)
  Sender: FDA-Public Use
  Company Number: US-SK LIFE SCIENCE, INC-SKPVG-2021-000447

PATIENT

DRUGS (5)
  1. XCOPRI [Suspect]
     Active Substance: CENOBAMATE
     Indication: PRODUCT USED FOR UNKNOWN INDICATION
     Dosage: UNK
     Route: 048
  2. KEPPRA [Concomitant]
     Active Substance: LEVETIRACETAM
     Indication: PRODUCT USED FOR UNKNOWN INDICATION
     Dosage: UNK
     Route: 065
  3. LAMICTAL [Concomitant]
     Active Substance: LAMOTRIGINE
     Indication: PRODUCT USED FOR UNKNOWN INDICATION
     Dosage: UNK
     Route: 065
  4. XCOPRI [Suspect]
     Active Substance: CENOBAMATE
     Dosage: 300 MILLIGRAM, BID, 200MG AT NIGHT AND 150MG IN THE MORNING
     Route: 048
  5. XCOPRI [Suspect]
     Active Substance: CENOBAMATE
     Dosage: 300 MILLIGRAM, BID, 200MG AT NIGHT AND 150MG IN THE MORNING
     Route: 048

REACTIONS (2)
  - COVID-19 [Not Recovered/Not Resolved]
  - Seizure [Not Recovered/Not Resolved]

NARRATIVE: CASE EVENT DATE: 202101
